FAERS Safety Report 10567123 (Version 1)
Quarter: 2014Q4

REPORT INFORMATION
  Report Type: Spontaneous
  Country: IT (occurrence: IT)
  Receive Date: 20141105
  Receipt Date: 20141105
  Transmission Date: 20150529
  Serious: Yes (Other)
  Sender: FDA-Public Use
  Company Number: PHHY2014IT142937

PATIENT
  Age: 66 Year
  Sex: Male

DRUGS (11)
  1. FOLINA [Concomitant]
     Active Substance: FOLIC ACID
  2. SAMYR [Concomitant]
     Active Substance: METHIONINE
  3. METHOTREXATE [Suspect]
     Active Substance: METHOTREXATE
     Indication: RHEUMATOID ARTHRITIS
     Dosage: 20 MG, QW
     Route: 030
     Dates: start: 20020101
  4. DIBASE [Concomitant]
     Active Substance: CHOLECALCIFEROL
  5. PANTORC [Concomitant]
     Active Substance: PANTOPRAZOLE SODIUM
  6. DEFLAN [Concomitant]
     Active Substance: DEFLAZACORT
  7. SULFASALAZINE. [Concomitant]
     Active Substance: SULFASALAZINE
  8. NORVASC [Concomitant]
     Active Substance: AMLODIPINE BESYLATE
  9. ATENOLOL. [Concomitant]
     Active Substance: ATENOLOL
  10. REMICADE [Suspect]
     Active Substance: INFLIXIMAB
     Indication: RHEUMATOID ARTHRITIS
     Dosage: 400 MG, UNK CYCLIC
     Route: 042
     Dates: start: 20140201
  11. LOSARTAN POTASSIUM AND HYDROCHLOROTHIAZIDE [Concomitant]
     Active Substance: HYDROCHLOROTHIAZIDE\LOSARTAN POTASSIUM

REACTIONS (1)
  - Basal cell carcinoma [Not Recovered/Not Resolved]

NARRATIVE: CASE EVENT DATE: 20141006
